FAERS Safety Report 25194881 (Version 1)
Quarter: 2025Q2

REPORT INFORMATION
  Report Type: Other
  Country: DE (occurrence: DE)
  Receive Date: 20250414
  Receipt Date: 20250414
  Transmission Date: 20250717
  Serious: Yes (Congenital Anomaly, Other)
  Sender: MACLEODS
  Company Number: DE-EMB-M202302454-1

PATIENT

DRUGS (12)
  1. ESCITALOPRAM [Suspect]
     Active Substance: ESCITALOPRAM OXALATE
     Indication: Product used for unknown indication
     Dosage: NOT CLEAR, IF SHE TOOK 4 OR 5 MG/D?SINCE 2012
     Route: 064
     Dates: start: 202211, end: 202307
  2. METHYLDOPA [Suspect]
     Active Substance: METHYLDOPA
     Indication: Product used for unknown indication
     Dosage: GESTATION PERIOD AT TIME OF EXPOSURE 15 WEEK,
     Route: 064
     Dates: start: 202303, end: 202303
  3. METHYLDOPA [Suspect]
     Active Substance: METHYLDOPA
     Dosage: GESTATION PERIOD AT TIME OF EXPOSURE AT 15 WEEK
     Route: 064
     Dates: start: 202307, end: 202307
  4. METOPROLOL [Suspect]
     Active Substance: METOPROLOL
     Indication: Product used for unknown indication
     Dosage: 23.75 MG: 1.5 TAB/D UNTIL GW 15, THEN PAUSED
     Route: 064
     Dates: start: 202211, end: 202303
  5. METOPROLOL [Suspect]
     Active Substance: METOPROLOL
     Route: 064
     Dates: start: 202307, end: 202307
  6. METOPROLOL [Suspect]
     Active Substance: METOPROLOL
     Dosage: 23,75 MG: 1.5 TABL./D?STARTED AGAIN AT GW 18
     Route: 064
     Dates: start: 202303, end: 202304
  7. METOPROLOL [Suspect]
     Active Substance: METOPROLOL
     Route: 064
     Dates: start: 202306, end: 202307
  8. METOPROLOL [Suspect]
     Active Substance: METOPROLOL
     Route: 064
     Dates: start: 202307, end: 202307
  9. METOPROLOL [Suspect]
     Active Substance: METOPROLOL
     Route: 064
     Dates: start: 202304, end: 202306
  10. ASPIRIN [Suspect]
     Active Substance: ASPIRIN
     Indication: Product used for unknown indication
     Dosage: GESTATION PERIOD AT TIME OF EXPOSURE 17 WK
     Route: 064
     Dates: start: 202303, end: 202303
  11. ASPIRIN [Suspect]
     Active Substance: ASPIRIN
     Dosage: GESTATION PERIOD AT TIME OF EXPOSURE 17 WK, POSSIBLY LONGER
     Route: 064
     Dates: start: 202303, end: 202303
  12. NIFEDIPINE [Suspect]
     Active Substance: NIFEDIPINE
     Indication: Product used for unknown indication
     Route: 064
     Dates: start: 202307, end: 202307

REACTIONS (2)
  - Congenital vesicoureteric reflux [Not Recovered/Not Resolved]
  - Foetal exposure during pregnancy [Unknown]
